FAERS Safety Report 21977755 (Version 9)
Quarter: 2025Q1

REPORT INFORMATION
  Report Type: Report from Study
  Country: CA (occurrence: CA)
  Receive Date: 20230210
  Receipt Date: 20250305
  Transmission Date: 20250408
  Serious: Yes (Hospitalization, Other)
  Sender: TAKEDA
  Company Number: CA-TAKEDA-2022TUS095226

PATIENT
  Age: 38 Year
  Sex: Female

DRUGS (10)
  1. VEDOLIZUMAB [Suspect]
     Active Substance: VEDOLIZUMAB
     Indication: Crohn^s disease
  2. VEDOLIZUMAB [Suspect]
     Active Substance: VEDOLIZUMAB
  3. VEDOLIZUMAB [Suspect]
     Active Substance: VEDOLIZUMAB
  4. VEDOLIZUMAB [Suspect]
     Active Substance: VEDOLIZUMAB
     Dosage: 300 MILLIGRAM, Q4WEEKS
     Dates: start: 20240617
  5. VEDOLIZUMAB [Suspect]
     Active Substance: VEDOLIZUMAB
     Dosage: 300 MILLIGRAM, Q4WEEKS
  6. VEDOLIZUMAB [Suspect]
     Active Substance: VEDOLIZUMAB
     Dosage: 300 MILLIGRAM, Q4WEEKS
  7. REMICADE [Suspect]
     Active Substance: INFLIXIMAB
     Indication: Product used for unknown indication
  8. PAXLOVID [Suspect]
     Active Substance: NIRMATRELVIR\RITONAVIR
     Indication: Product used for unknown indication
  9. SULFASALAZINE [Concomitant]
     Active Substance: SULFASALAZINE
     Dosage: UNK UNK, QD
  10. DIPHENHYDRAMINE [Concomitant]
     Active Substance: DIPHENHYDRAMINE
     Indication: Premedication

REACTIONS (19)
  - Crohn^s disease [Recovered/Resolved]
  - Intestinal obstruction [Recovered/Resolved]
  - Systemic lupus erythematosus [Not Recovered/Not Resolved]
  - Uveitis [Unknown]
  - Scleritis [Recovering/Resolving]
  - Electrolyte imbalance [Recovering/Resolving]
  - Aphasia [Recovering/Resolving]
  - Influenza [Recovering/Resolving]
  - Drug ineffective [Unknown]
  - Diarrhoea [Unknown]
  - Influenza like illness [Unknown]
  - COVID-19 [Recovered/Resolved]
  - Asthenia [Recovered/Resolved]
  - Blood phosphorus decreased [Recovered/Resolved]
  - Empty sella syndrome [Not Recovered/Not Resolved]
  - Off label use [Unknown]
  - Blood potassium decreased [Recovered/Resolved]
  - Arthralgia [Unknown]
  - Fatigue [Recovered/Resolved]

NARRATIVE: CASE EVENT DATE: 20240617
